FAERS Safety Report 11574517 (Version 2)
Quarter: 2015Q4

REPORT INFORMATION
  Report Type: Spontaneous
  Country: GB (occurrence: GB)
  Receive Date: 20150930
  Receipt Date: 20151001
  Transmission Date: 20160304
  Serious: Yes (Other)
  Sender: FDA-Public Use
  Company Number: GB-ASTRAZENECA-2015SE91682

PATIENT
  Age: 55 Year
  Sex: Female
  Weight: 79 kg

DRUGS (6)
  1. DOXAZOSIN [Suspect]
     Active Substance: DOXAZOSIN\DOXAZOSIN MESYLATE
     Indication: HYPERTENSION
     Route: 048
     Dates: start: 20150724, end: 20150903
  2. CANDESARTAN [Suspect]
     Active Substance: CANDESARTAN
     Indication: HYPERTENSION
     Route: 048
     Dates: start: 20150515
  3. INDAPAMIDE. [Concomitant]
     Active Substance: INDAPAMIDE
  4. AMLODIPINE [Suspect]
     Active Substance: AMLODIPINE BESYLATE
     Indication: HYPERTENSION
     Route: 048
     Dates: start: 20150311, end: 20150617
  5. BETAHISTINE [Concomitant]
     Active Substance: BETAHISTINE
  6. PERINDOPRIL [Suspect]
     Active Substance: PERINDOPRIL
     Indication: HYPERTENSION
     Route: 048
     Dates: start: 20150311, end: 20150402

REACTIONS (6)
  - Skin fissures [Recovered/Resolved]
  - Dry skin [Recovered/Resolved]
  - Swelling face [Recovered/Resolved]
  - Joint swelling [Recovered/Resolved]
  - Cough [Recovered/Resolved]
  - Pruritus generalised [Recovered/Resolved]
